FAERS Safety Report 13398806 (Version 1)
Quarter: 2017Q2

REPORT INFORMATION
  Report Type: Spontaneous
  Country: CA (occurrence: CA)
  Receive Date: 20170403
  Receipt Date: 20170403
  Transmission Date: 20170830
  Serious: Yes (Life-Threatening, Other)
  Sender: FDA-Public Use
  Company Number: CA-TEVA-755470ACC

PATIENT
  Age: 5 Year
  Sex: Male
  Weight: 17 kg

DRUGS (13)
  1. SEPTRA INJECTION [Concomitant]
  2. IFOSFAMIDE FOR INJECTION, USP [Concomitant]
  3. POTASSIUM CHLORIDE. [Concomitant]
     Active Substance: POTASSIUM CHLORIDE
  4. FLOVENT HFA [Concomitant]
     Active Substance: FLUTICASONE PROPIONATE
  5. GRAVOL IV AMPOULES [Concomitant]
  6. MESNA. [Concomitant]
     Active Substance: MESNA
  7. PEG 3350 [Concomitant]
     Active Substance: POLYETHYLENE GLYCOL 3350
  8. ETOPOSIDE INJECTION [Suspect]
     Active Substance: ETOPOSIDE
     Indication: EWING^S SARCOMA
     Dosage: 76 MILLIGRAM DAILY;
     Route: 042
  9. LACTULOSE. [Concomitant]
     Active Substance: LACTULOSE
  10. ONDANSETRON [Concomitant]
     Active Substance: ONDANSETRON
  11. VENTOLIN [Concomitant]
     Active Substance: ALBUTEROL SULFATE
  12. DEXTROSE 5% IN WATER [Concomitant]
  13. MORPHINE [Concomitant]
     Active Substance: MORPHINE

REACTIONS (6)
  - Chills [Recovered/Resolved]
  - Eye swelling [Recovered/Resolved]
  - Bronchospasm [Recovered/Resolved]
  - Lip swelling [Recovered/Resolved]
  - Cough [Recovered/Resolved]
  - Vomiting [Recovered/Resolved]
